FAERS Safety Report 5227476-4 (Version None)
Quarter: 2007Q1

REPORT INFORMATION
  Report Type: 
  Country: None (occurrence: None)
  Receive Date: 20070202
  Receipt Date: 20070122
  Transmission Date: 20070707
  Serious: Yes (Other)
  Sender: FDA-Public Use
  Company Number: PHEH2007US01124

PATIENT
  Age: 7 Year

DRUGS (1)
  1. RITALIN [Suspect]

REACTIONS (1)
  - COLOUR BLINDNESS [None]
